FAERS Safety Report 11309899 (Version 1)
Quarter: 2015Q3

REPORT INFORMATION
  Report Type: Spontaneous
  Country: BR (occurrence: BR)
  Receive Date: 20150724
  Receipt Date: 20150724
  Transmission Date: 20151125
  Serious: Yes (Hospitalization, Other)
  Sender: FDA-Public Use
  Company Number: BR-GLAXOSMITHKLINE-BR2015GSK105785

PATIENT
  Sex: Male
  Weight: 38 kg

DRUGS (6)
  1. MONTELAIR [Suspect]
     Active Substance: MONTELUKAST SODIUM
     Indication: ASTHMA
     Dosage: UNK
     Route: 048
  2. SINGULAIR [Suspect]
     Active Substance: MONTELUKAST SODIUM
     Indication: ASTHMA
     Dosage: 1 UNK, QD
     Route: 048
  3. ZINNAT [Suspect]
     Active Substance: CEFUROXIME AXETIL
     Indication: NASAL CONGESTION
  4. AVAMYS [Concomitant]
     Active Substance: FLUTICASONE FUROATE
     Indication: PRODUCT USED FOR UNKNOWN INDICATION
     Dosage: 1 PUFF(S), QD
     Route: 045
  5. SERETIDE [Suspect]
     Active Substance: FLUTICASONE FUROATE\SALMETEROL XINAFOATE
     Indication: ASTHMA
     Dosage: 1 PUFF(S), BID
     Route: 055
  6. ZINNAT [Suspect]
     Active Substance: CEFUROXIME AXETIL
     Indication: LUNG INFECTION
     Route: 048

REACTIONS (7)
  - Weight decreased [Recovered/Resolved]
  - Drug administration error [Not Recovered/Not Resolved]
  - Septic shock [Recovered/Resolved]
  - Wheezing [Not Recovered/Not Resolved]
  - Pneumonia [Recovered/Resolved]
  - Dyspnoea [Not Recovered/Not Resolved]
  - Asthma [Recovered/Resolved with Sequelae]
